FAERS Safety Report 16212357 (Version 13)
Quarter: 2019Q3

REPORT INFORMATION
  Report Type: Spontaneous
  Country: US (occurrence: US)
  Receive Date: 20190418
  Receipt Date: 20190820
  Transmission Date: 20191004
  Serious: Yes (Hospitalization, Other)
  Sender: FDA-Public Use
  Company Number: US-PFIZER INC-2019149494

PATIENT
  Age: 87 Year
  Sex: Female
  Weight: 78 kg

DRUGS (14)
  1. LYRICA [Suspect]
     Active Substance: PREGABALIN
     Indication: POSTERIOR TIBIAL NERVE INJURY
     Dosage: 100 MG, 2X/DAY
     Route: 048
  2. LYRICA [Suspect]
     Active Substance: PREGABALIN
     Indication: SPINAL OSTEOARTHRITIS
  3. CYMBALTA [Concomitant]
     Active Substance: DULOXETINE HYDROCHLORIDE
     Indication: POST LAMINECTOMY SYNDROME
     Dosage: 30 MG, 1X/DAY
  4. MORPHINE [Concomitant]
     Active Substance: MORPHINE
     Indication: PAIN
     Dosage: 15 MG, UNK  (15 MG ER TABLETS)
  5. CYMBALTA [Concomitant]
     Active Substance: DULOXETINE HYDROCHLORIDE
     Indication: NEUROPATHY PERIPHERAL
  6. LYRICA [Suspect]
     Active Substance: PREGABALIN
     Indication: NEUROPATHY PERIPHERAL
     Dosage: 100 MG, 2X/DAY
     Route: 048
  7. LYRICA [Suspect]
     Active Substance: PREGABALIN
     Indication: FIBROMYALGIA
  8. LASIX [Concomitant]
     Active Substance: FUROSEMIDE
     Dosage: 0.5 DF, DAILY (1/2 TABLET A DAY)
  9. LYRICA [Suspect]
     Active Substance: PREGABALIN
     Indication: NERVE BLOCK
  10. LYRICA [Suspect]
     Active Substance: PREGABALIN
     Indication: POST LAMINECTOMY SYNDROME
  11. LYRICA [Suspect]
     Active Substance: PREGABALIN
     Indication: POLYNEUROPATHY
     Dosage: 75 MG, 2X/DAY
     Route: 048
  12. LYRICA [Suspect]
     Active Substance: PREGABALIN
     Indication: NEURALGIA
  13. HYDROCODONE [Concomitant]
     Active Substance: HYDROCODONE
     Indication: PAIN
     Dosage: UNK (10-325 MG TABLETS)
  14. CYMBALTA [Concomitant]
     Active Substance: DULOXETINE HYDROCHLORIDE
     Indication: SPINAL OSTEOARTHRITIS

REACTIONS (10)
  - Depressed mood [Unknown]
  - Balance disorder [Unknown]
  - Asthenia [Unknown]
  - Insomnia [Unknown]
  - Frustration tolerance decreased [Unknown]
  - Hypoacusis [Unknown]
  - Dependence [Unknown]
  - Pain [Not Recovered/Not Resolved]
  - Confusional state [Unknown]
  - Therapeutic product effect incomplete [Unknown]
